FAERS Safety Report 5632029-X (Version None)
Quarter: 2008Q1

REPORT INFORMATION
  Report Type: 
  Country: None (occurrence: None)
  Receive Date: 20080213
  Receipt Date: 20080131
  Transmission Date: 20080703
  Serious: Yes (Hospitalization)
  Sender: FDA-Public Use
  Company Number: 2008SP002519

PATIENT
  Age: 35 Year
  Sex: Female

DRUGS (1)
  1. NOXAFIL [Suspect]
     Indication: ASPERGILLOSIS
     Dosage: 200 MG; QID;
     Dates: start: 20071003

REACTIONS (4)
  - LABORATORY TEST ABNORMAL [None]
  - PULMONARY EMBOLISM [None]
  - RENAL VEIN THROMBOSIS [None]
  - VENA CAVA THROMBOSIS [None]
